FAERS Safety Report 17684393 (Version 1)
Quarter: 2020Q2

REPORT INFORMATION
  Report Type: Spontaneous
  Country: US (occurrence: US)
  Receive Date: 20200418
  Receipt Date: 20200418
  Transmission Date: 20200714
  Serious: Yes (Other)
  Sender: FDA-Public Use
  Company Number: None

PATIENT
  Age: 67 Year
  Sex: Female
  Weight: 58.5 kg

DRUGS (9)
  1. HYDROCHLOROTHIAZIDE. [Concomitant]
     Active Substance: HYDROCHLOROTHIAZIDE
  2. VITAMIN D [Concomitant]
     Active Substance: VITAMIN D NOS
  3. MULTIPLE VITAMIN [Concomitant]
     Active Substance: VITAMINS
  4. PROBIOTIC [Concomitant]
     Active Substance: PROBIOTICS NOS
  5. NEXIUM [Concomitant]
     Active Substance: ESOMEPRAZOLE MAGNESIUM
  6. CLOBATASOL [Suspect]
     Active Substance: CLOBETASOL PROPIONATE
     Indication: LICHEN SCLEROSUS
     Route: 061
     Dates: start: 20191128, end: 20200120
  7. LISINOPRIL. [Concomitant]
     Active Substance: LISINOPRIL
  8. CLOBATASOL [Suspect]
     Active Substance: CLOBETASOL PROPIONATE
     Indication: LICHEN SCLEROSUS
     Route: 061
     Dates: start: 20191121, end: 20191213
  9. BABY ASPIRIN [Concomitant]
     Active Substance: ASPIRIN

REACTIONS (6)
  - Rash [None]
  - Skin burning sensation [None]
  - Chills [None]
  - Steroid withdrawal syndrome [None]
  - Hot flush [None]
  - Erythema [None]

NARRATIVE: CASE EVENT DATE: 20200108
